FAERS Safety Report 7347299-X (Version None)
Quarter: 2011Q1

REPORT INFORMATION
  Report Type: 
  Country: None (occurrence: None)
  Receive Date: 20110303
  Receipt Date: 20110215
  Transmission Date: 20110831
  Serious: Yes (Life-Threatening)
  Sender: FDA-Public Use
  Company Number: 009336

PATIENT
  Age: 54 Year
  Sex: Female
  Weight: 45 kg

DRUGS (4)
  1. TOPAMAX [Concomitant]
  2. LAMICTAL [Concomitant]
  3. LACOSAMIDE [Suspect]
     Indication: CONVULSION
     Dosage: (50 MG BID, FOR 3 DAYS ORAL) (100 MG BID, FOR 2 DAYS ORAL) (150MG ORAL) (DOSE REDUCTION ORAL) (200 M
     Route: 048
     Dates: start: 20100320, end: 20100320
  4. KEPPRA [Concomitant]

REACTIONS (4)
  - TACHYCARDIA [None]
  - NODAL ARRHYTHMIA [None]
  - ATRIOVENTRICULAR BLOCK [None]
  - SINUS ARREST [None]
